FAERS Safety Report 14127430 (Version 1)
Quarter: 2017Q4

REPORT INFORMATION
  Report Type: Spontaneous
  Country: US (occurrence: US)
  Receive Date: 20171026
  Receipt Date: 20171026
  Transmission Date: 20180321
  Serious: No
  Sender: FDA-Public Use
  Company Number: US-TEVA-791726ACC

PATIENT
  Age: 63 Year
  Sex: Female
  Weight: 43.13 kg

DRUGS (1)
  1. CARBIDOPA AND LEVODOPA [Suspect]
     Active Substance: CARBIDOPA\LEVODOPA
     Dosage: 25 MG/100 MG
     Dates: start: 2017, end: 2017

REACTIONS (4)
  - Weight decreased [Recovered/Resolved]
  - Product substitution issue [Unknown]
  - Pain in extremity [Recovered/Resolved]
  - Decreased appetite [Recovered/Resolved]

NARRATIVE: CASE EVENT DATE: 2017
